FAERS Safety Report 4348058-2 (Version None)
Quarter: 2004Q1

REPORT INFORMATION
  Report Type: 
  Country: None (occurrence: None)
  Receive Date: 20040329
  Receipt Date: 20040212
  Transmission Date: 20041129
  Serious: No
  Sender: FDA-Public Use
  Company Number: USA040259254

PATIENT
  Age: 65 Year
  Sex: Female

DRUGS (2)
  1. FORTEO [Suspect]
     Dates: start: 20041204
  2. THYROID TAB [Concomitant]

REACTIONS (4)
  - BONE PAIN [None]
  - DEPRESSION [None]
  - DYSGEUSIA [None]
  - NAUSEA [None]
